FAERS Safety Report 7432989-0 (Version None)
Quarter: 2011Q2

REPORT INFORMATION
  Report Type: 
  Country: None (occurrence: None)
  Receive Date: 20110422
  Receipt Date: 20110413
  Transmission Date: 20111010
  Serious: No
  Sender: FDA-Public Use
  Company Number: US-B.I. PHARMACEUTICALS,INC./RIDGEFIELD-2011-BP-10722BP

PATIENT
  Age: 77 Year
  Sex: Male

DRUGS (8)
  1. K+ [Concomitant]
     Indication: POLYURIA
  2. TOPROL-XL [Concomitant]
     Indication: ATRIAL FIBRILLATION
  3. M.V.I. [Concomitant]
     Indication: ROUTINE HEALTH MAINTENANCE
  4. LASIX [Concomitant]
     Indication: DIURETIC THERAPY
  5. PRADAXA [Suspect]
     Indication: ATRIAL FIBRILLATION
     Dosage: 300 MG
     Route: 048
     Dates: start: 20110408
  6. LISINOPRIL [Concomitant]
     Indication: HYPERTENSION
  7. COLACE [Concomitant]
     Indication: ROUTINE HEALTH MAINTENANCE
  8. ZOCOR [Concomitant]
     Indication: BLOOD CHOLESTEROL INCREASED

REACTIONS (1)
  - RETCHING [None]
